FAERS Safety Report 10086879 (Version 2)
Quarter: 2014Q2

REPORT INFORMATION
  Report Type: Spontaneous
  Country: GB (occurrence: GB)
  Receive Date: 20140418
  Receipt Date: 20140522
  Transmission Date: 20141212
  Serious: Yes (Death, Hospitalization)
  Sender: FDA-Public Use
  Company Number: GB-TEVA-474212ISR

PATIENT
  Age: 78 Year
  Sex: Male
  Weight: 60.5 kg

DRUGS (12)
  1. AMIODARONE [Suspect]
     Indication: ATRIAL FIBRILLATION
     Dosage: EVERY MORNING
     Route: 048
     Dates: start: 20110825, end: 20140306
  2. BISOPROLOL [Concomitant]
  3. CLOPIDOGREL [Concomitant]
  4. DIGOXIN [Concomitant]
  5. EZETIMIBE [Concomitant]
  6. FLUDROCORTISONE [Concomitant]
  7. GLYCERYL TRINITRATE [Concomitant]
  8. PARACETAMOL [Concomitant]
  9. RANITIDINE [Concomitant]
  10. SENNA [Concomitant]
  11. AMOXICILLIN [Concomitant]
  12. PHENOXYMETHYLPENICILLIN [Concomitant]

REACTIONS (6)
  - Pneumonia aspiration [Fatal]
  - Hyperthyroidism [Fatal]
  - Sepsis [Fatal]
  - Agitation [Not Recovered/Not Resolved]
  - Confusional state [Not Recovered/Not Resolved]
  - Thyrotoxic crisis [Not Recovered/Not Resolved]
